FAERS Safety Report 10744594 (Version 1)
Quarter: 2015Q1

REPORT INFORMATION
  Report Type: Spontaneous
  Country: US (occurrence: None)
  Receive Date: 20150126
  Receipt Date: 20150126
  Transmission Date: 20150721
  Serious: Yes (Other)
  Sender: FDA-Public Use
  Company Number: 2015-US-000674

PATIENT
  Sex: Female
  Weight: 80.7 kg

DRUGS (10)
  1. VENTOLIN HFA [Concomitant]
     Active Substance: ALBUTEROL SULFATE
  2. CELEBREX [Suspect]
     Active Substance: CELECOXIB
     Indication: PRODUCT USED FOR UNKNOWN INDICATION
  3. XYREM [Suspect]
     Active Substance: SODIUM OXYBATE
     Indication: NARCOLEPSY
     Route: 048
     Dates: start: 200404, end: 2004
  4. ERYTHROMYCIN-SULFISOXAZOLE [Suspect]
     Active Substance: ERYTHROMYCIN ETHYLSUCCINATE\SULFISOXAZOLE ACETYL
     Indication: PRODUCT USED FOR UNKNOWN INDICATION
  5. OXYCONTIN [Concomitant]
     Active Substance: OXYCODONE HYDROCHLORIDE
  6. LANSOPRAZOLE. [Concomitant]
     Active Substance: LANSOPRAZOLE
  7. LOVAZA [Concomitant]
     Active Substance: OMEGA-3-ACID ETHYL ESTERS
  8. CYMBALTA [Concomitant]
     Active Substance: DULOXETINE HYDROCHLORIDE
  9. OXYCODONE AND ACETAMINOPHEN (OXYCODONE HYDORCHLORIDE, PARACETAMOL) [Concomitant]
  10. LEVOTHYROXINE SODIUM (LEVOTHYROXINE SODIUM) [Concomitant]

REACTIONS (4)
  - Sjogren^s syndrome [None]
  - Hepatic steatosis [None]
  - Mycobacterial infection [None]
  - Hypersensitivity [None]

NARRATIVE: CASE EVENT DATE: 2014
